FAERS Safety Report 23328096 (Version 1)
Quarter: 2023Q4

REPORT INFORMATION
  Report Type: Spontaneous
  Country: US (occurrence: US)
  Receive Date: 20231221
  Receipt Date: 20231221
  Transmission Date: 20240110
  Serious: No
  Sender: FDA-Public Use
  Company Number: US-BIOMARINAP-US-2023-154567

PATIENT

DRUGS (1)
  1. PALYNZIQ [Suspect]
     Active Substance: PEGVALIASE-PQPZ
     Indication: Phenylketonuria
     Dosage: 2.5 MILLILITER
     Route: 058
     Dates: start: 20231116

REACTIONS (3)
  - Muscle spasms [Unknown]
  - Flushing [Unknown]
  - Myalgia [Unknown]

NARRATIVE: CASE EVENT DATE: 20231116
